FAERS Safety Report 15146113 (Version 1)
Quarter: 2018Q3

REPORT INFORMATION
  Report Type: Spontaneous
  Country: DE (occurrence: DE)
  Receive Date: 20180714
  Receipt Date: 20180714
  Transmission Date: 20181010
  Serious: Yes (Other)
  Sender: FDA-Public Use
  Company Number: DE-TORRENT-00008832

PATIENT
  Sex: Male
  Weight: 3 kg

DRUGS (1)
  1. SERTRALINE [Suspect]
     Active Substance: SERTRALINE HYDROCHLORIDE
     Indication: DEPRESSION
     Dosage: 100 [MG/D ]/ IN PREGNANCY 100MG/D, PERIPARTAL 75MG/D, LATER AGAIN 100MG/D
     Route: 063

REACTIONS (2)
  - Agitation [Recovered/Resolved]
  - Exposure via breast milk [Unknown]
